FAERS Safety Report 15354916 (Version 1)
Quarter: 2018Q3

REPORT INFORMATION
  Report Type: Spontaneous
  Country: DE (occurrence: DE)
  Receive Date: 20180906
  Receipt Date: 20180906
  Transmission Date: 20181010
  Serious: Yes (Other)
  Sender: FDA-Public Use
  Company Number: DE-CELLTRION INC.-2018DE021873

PATIENT

DRUGS (1)
  1. INFLECTRA [Suspect]
     Active Substance: INFLIXIMAB-DYYB
     Indication: CROHN^S DISEASE
     Dosage: 400 MG, CYCLIC (EVERY 8 WEEKS)
     Route: 042
     Dates: start: 20170711, end: 20180802

REACTIONS (6)
  - Palpitations [Recovered/Resolved]
  - Feeling hot [Recovered/Resolved]
  - Anxiety [Unknown]
  - Dizziness [Recovered/Resolved]
  - Anaphylactic reaction [Recovered/Resolved]
  - Tachycardia [Recovered/Resolved]

NARRATIVE: CASE EVENT DATE: 20180802
